FAERS Safety Report 12447192 (Version 1)
Quarter: 2016Q2

REPORT INFORMATION
  Report Type: Spontaneous
  Country: US (occurrence: None)
  Receive Date: 20160607
  Receipt Date: 20160607
  Transmission Date: 20160815
  Serious: No
  Sender: FDA-Public Use
  Company Number: None

PATIENT

DRUGS (1)
  1. ACETIC ACID SOLUTION. 0.25% BAXTER [Suspect]
     Active Substance: ACETIC ACID
     Indication: RESPIRATORY DISORDER
     Dosage: BUBBLE CPAP RESERVOIR
     Dates: start: 20160605, end: 20160606

REACTIONS (2)
  - Product colour issue [None]
  - Product contamination microbial [None]

NARRATIVE: CASE EVENT DATE: 20160606
